FAERS Safety Report 14064498 (Version 1)
Quarter: 2017Q4

REPORT INFORMATION
  Report Type: Spontaneous
  Country: US (occurrence: US)
  Receive Date: 20171009
  Receipt Date: 20171009
  Transmission Date: 20180321
  Serious: Yes (Hospitalization, Other)
  Sender: FDA-Public Use
  Company Number: US-SYNTHON BV-NL01PV17_45040

PATIENT
  Age: 62 Year

DRUGS (2)
  1. TAMSULOSIN [Suspect]
     Active Substance: TAMSULOSIN
     Indication: BENIGN PROSTATIC HYPERPLASIA
     Dosage: UNK
  2. NITROGLYCERIN. [Interacting]
     Active Substance: NITROGLYCERIN
     Dosage: UNK
     Route: 060

REACTIONS (8)
  - Musculoskeletal discomfort [Unknown]
  - Hyperhidrosis [Unknown]
  - Chest pain [Unknown]
  - Pain in extremity [Unknown]
  - Acute coronary syndrome [Unknown]
  - Asthenia [Unknown]
  - Dyspnoea [Unknown]
  - Drug interaction [Unknown]
